FAERS Safety Report 5622333-3 (Version None)
Quarter: 2008Q1

REPORT INFORMATION
  Report Type: 
  Country: None (occurrence: None)
  Receive Date: 20080211
  Receipt Date: 20080130
  Transmission Date: 20080703
  Serious: Yes (Other)
  Sender: FDA-Public Use
  Company Number: US-PFIZER INC-2008009305

PATIENT
  Sex: Male

DRUGS (4)
  1. DEPO-MEDROL [Suspect]
     Indication: INTERVERTEBRAL DISC PROTRUSION
     Route: 008
  2. VITAMIN B [Concomitant]
  3. FISH OIL [Concomitant]
  4. IBUPROFEN [Concomitant]
     Dates: end: 20070701

REACTIONS (10)
  - ABDOMINAL PAIN LOWER [None]
  - ARTHRALGIA [None]
  - BALANCE DISORDER [None]
  - INTESTINAL FUNCTIONAL DISORDER [None]
  - MOOD ALTERED [None]
  - MUSCULOSKELETAL STIFFNESS [None]
  - PAIN [None]
  - PARAESTHESIA [None]
  - SENSORY LOSS [None]
  - TREMOR [None]
